FAERS Safety Report 6571285-0 (Version None)
Quarter: 2010Q1

REPORT INFORMATION
  Report Type: 
  Country: None (occurrence: None)
  Receive Date: 20100129
  Receipt Date: 20100115
  Transmission Date: 20100710
  Serious: Yes (Hospitalization)
  Sender: FDA-Public Use
  Company Number: 1000011473

PATIENT
  Age: 27 Year
  Sex: Female

DRUGS (1)
  1. ESCITALOPRAM OXALATE [Suspect]
     Dosage: 15 MG (15 MG, 1 IN 1 D)
     Dates: start: 20050101

REACTIONS (3)
  - BLOOD PROLACTIN INCREASED [None]
  - HEADACHE [None]
  - MENSTRUATION IRREGULAR [None]
